FAERS Safety Report 9064345 (Version 1)
Quarter: 2013Q1

REPORT INFORMATION
  Report Type: Report from Study
  Country: GB (occurrence: GB)
  Receive Date: 20130128
  Receipt Date: 20130128
  Transmission Date: 20140127
  Serious: Yes (Other)
  Sender: FDA-Public Use
  Company Number: GB-JNJFOC-20130113689

PATIENT
  Sex: Male

DRUGS (5)
  1. SIMPONI [Suspect]
     Indication: PRODUCT USED FOR UNKNOWN INDICATION
     Route: 058
  2. SIMPONI [Suspect]
     Indication: PRODUCT USED FOR UNKNOWN INDICATION
     Route: 058
     Dates: start: 20121222
  3. METHOTREXATE [Concomitant]
  4. FOLIC ACID [Concomitant]
  5. NAPROXEN [Concomitant]

REACTIONS (1)
  - Haematochezia [Not Recovered/Not Resolved]
